FAERS Safety Report 10454214 (Version 1)
Quarter: 2014Q3

REPORT INFORMATION
  Report Type: Spontaneous
  Country: MX (occurrence: MX)
  Receive Date: 20140915
  Receipt Date: 20140915
  Transmission Date: 20150326
  Serious: Yes (Hospitalization)
  Sender: FDA-Public Use
  Company Number: MX-B.I. PHARMACEUTICALS,INC./RIDGEFIELD-2014-BI-42565MX

PATIENT
  Sex: Male

DRUGS (2)
  1. PRADAXAR [Suspect]
     Active Substance: DABIGATRAN ETEXILATE
     Indication: AORTIC STENT INSERTION
  2. PRADAXAR [Suspect]
     Active Substance: DABIGATRAN ETEXILATE
     Indication: AORTIC THROMBOSIS
     Dosage: 150 MG
     Route: 048
     Dates: start: 2013, end: 2013

REACTIONS (1)
  - Device occlusion [Unknown]

NARRATIVE: CASE EVENT DATE: 2013
